FAERS Safety Report 5124806-9 (Version None)
Quarter: 2006Q4

REPORT INFORMATION
  Report Type: 
  Country: None (occurrence: None)
  Receive Date: 20061011
  Receipt Date: 20060804
  Transmission Date: 20070319
  Serious: Yes (Hospitalization)
  Sender: FDA-Public Use
  Company Number: US-AVENTIS-200616612US

PATIENT
  Sex: Male
  Weight: 88.6 kg

DRUGS (12)
  1. LANTUS [Suspect]
     Indication: DIABETES MELLITUS INSULIN-DEPENDENT
  2. LANTUS [Suspect]
  3. HUMALOG [Concomitant]
     Dosage: DOSE: UNK
  4. PROTONIX [Concomitant]
  5. PLAVIX [Concomitant]
  6. LISINOPRIL [Concomitant]
     Dosage: DOSE: UNKNOWN
  7. PLAQUENIL [Concomitant]
  8. TOPROL-XL [Concomitant]
  9. ZOCOR [Concomitant]
  10. WELLBUTRIN [Concomitant]
  11. HYDROCODONE BITARTRATE AND IBUPROFEN [Concomitant]
     Dosage: DOSE: HYDROCODONE 7.5 WITH 200MG IBUPROFEN
  12. ASPIRIN [Concomitant]

REACTIONS (2)
  - BLOOD GLUCOSE INCREASED [None]
  - MYOCARDIAL INFARCTION [None]
